FAERS Safety Report 9373934 (Version 2)
Quarter: 2013Q4

REPORT INFORMATION
  Report Type: Spontaneous
  Country: BR (occurrence: BR)
  Receive Date: 20130628
  Receipt Date: 20131024
  Transmission Date: 20140711
  Serious: Yes (Other)
  Sender: FDA-Public Use
  Company Number: BR-ROCHE-537697

PATIENT
  Age: 48 Year
  Sex: Female
  Weight: 70 kg

DRUGS (17)
  1. RIVOTRIL [Suspect]
     Indication: ANXIETY
     Route: 048
  2. RIVOTRIL [Suspect]
     Indication: DEPRESSION
     Route: 048
     Dates: start: 20071212, end: 200804
  3. RIVOTRIL [Suspect]
     Indication: BIPOLAR DISORDER
     Route: 048
  4. RIVOTRIL [Suspect]
     Route: 048
  5. RIVOTRIL [Suspect]
     Route: 048
  6. RIVOTRIL [Suspect]
     Route: 048
  7. RIVOTRIL [Suspect]
     Route: 048
  8. RIVOTRIL [Suspect]
     Dosage: 3 DROSP AS MAINTENENCE THERAPY.
     Route: 048
  9. GARDENAL [Concomitant]
     Indication: DEPRESSION
  10. GARDENAL [Concomitant]
     Indication: BIPOLAR DISORDER
  11. TRILEPTAL [Concomitant]
     Indication: EPILEPSY
     Route: 048
  12. TRILEPTAL [Concomitant]
     Route: 048
  13. TRYPTANOL [Concomitant]
     Indication: ANXIETY
     Dosage: DRUG NAME REPORTED AS: TRYPTAL(UNABLE TO FIND IN ADVENT)
     Route: 065
  14. TEGRETOL [Concomitant]
  15. HIDANTAL [Concomitant]
     Indication: CONVULSION
     Route: 048
  16. HIDANTAL [Concomitant]
     Indication: DEPRESSION
     Route: 048
  17. HIDANTAL [Concomitant]
     Indication: BIPOLAR DISORDER

REACTIONS (11)
  - Drug ineffective [Unknown]
  - Nausea [Not Recovered/Not Resolved]
  - No therapeutic response [Unknown]
  - Anxiety [Recovering/Resolving]
  - Nervousness [Not Recovered/Not Resolved]
  - Amnesia [Recovered/Resolved]
  - Malaise [Recovered/Resolved]
  - Therapeutic response decreased [Not Recovered/Not Resolved]
  - Anxiety [Unknown]
  - Medication error [Unknown]
  - Convulsion [Not Recovered/Not Resolved]
